FAERS Safety Report 8504184-5 (Version None)
Quarter: 2012Q3

REPORT INFORMATION
  Report Type: 
  Country: None (occurrence: None)
  Receive Date: 20120711
  Receipt Date: 20120703
  Transmission Date: 20120928
  Serious: Yes (Hospitalization, Disabling, Other)
  Sender: FDA-Public Use
  Company Number: US-009507513-1105USA02542

PATIENT

DRUGS (10)
  1. MK-0805 [Concomitant]
     Indication: FLUID RETENTION
     Dosage: APPROX. 1954 - PRESENT
  2. PRILOSEC [Concomitant]
     Dates: start: 20010101, end: 20100401
  3. FOSAMAX [Suspect]
  4. BENICAR [Concomitant]
     Indication: BLOOD PRESSURE
     Dates: start: 19910101
  5. FOSAMAX [Suspect]
     Dosage: 70 MG, QW
     Route: 048
     Dates: start: 20020702
  6. CLONIDINE [Concomitant]
     Indication: HYPERTENSION
     Dates: start: 19910101
  7. FOSAMAX [Suspect]
     Indication: OSTEOPOROSIS
     Dosage: 10 MG, QD
     Route: 048
     Dates: start: 20001017, end: 20011115
  8. FOSAMAX [Suspect]
     Dosage: 70 MG, QW
     Route: 048
     Dates: start: 20080320, end: 20100701
  9. FOSAMAX [Suspect]
     Indication: OSTEOPOROSIS PROPHYLAXIS
     Dosage: 70 MG, QW
     Route: 048
     Dates: start: 20011115, end: 20020101
  10. MK-9278 [Concomitant]
     Dates: start: 20000101

REACTIONS (47)
  - FEMUR FRACTURE [None]
  - STRESS FRACTURE [None]
  - IMPAIRED HEALING [None]
  - OEDEMA [None]
  - FALL [None]
  - FRACTURED ISCHIUM [None]
  - ASTHMA [None]
  - CONFUSIONAL STATE [None]
  - OCCULT BLOOD POSITIVE [None]
  - DEPRESSION [None]
  - GOUT [None]
  - PUBIS FRACTURE [None]
  - LIPIDS INCREASED [None]
  - PAIN IN EXTREMITY [None]
  - OSTEOPOROSIS [None]
  - RHINITIS ALLERGIC [None]
  - RESPIRATORY TRACT INFECTION [None]
  - DYSPEPSIA [None]
  - LUMBAR SPINAL STENOSIS [None]
  - SPONDYLOLISTHESIS [None]
  - CHEST PAIN [None]
  - PSORIASIS [None]
  - UPPER RESPIRATORY TRACT INFECTION [None]
  - LUMBAR RADICULOPATHY [None]
  - LOW TURNOVER OSTEOPATHY [None]
  - GASTROOESOPHAGEAL REFLUX DISEASE [None]
  - SYNOVIAL CYST [None]
  - INSOMNIA [None]
  - PELVIC PAIN [None]
  - ARTHRALGIA [None]
  - HEADACHE [None]
  - DIARRHOEA [None]
  - VOMITING [None]
  - WEIGHT DECREASED [None]
  - BACK PAIN [None]
  - HYPOAESTHESIA [None]
  - OSTEOPENIA [None]
  - ARRHYTHMIA [None]
  - COSTOCHONDRITIS [None]
  - SINUS DISORDER [None]
  - ARTERIOSCLEROSIS [None]
  - CHRONIC OBSTRUCTIVE PULMONARY DISEASE [None]
  - CONSTIPATION [None]
  - DYSPNOEA [None]
  - CHOLELITHIASIS [None]
  - NAUSEA [None]
  - INTERVERTEBRAL DISC PROTRUSION [None]
